FAERS Safety Report 4744424-1 (Version None)
Quarter: 2005Q3

REPORT INFORMATION
  Report Type: 
  Country: None (occurrence: None)
  Receive Date: 20050812
  Receipt Date: 20050511
  Transmission Date: 20060218
  Serious: Yes (Hospitalization)
  Sender: FDA-Public Use
  Company Number: US-MERCK-0505USA01790

PATIENT
  Age: 73 Year
  Sex: Male
  Weight: 81 kg

DRUGS (20)
  1. VIOXX [Suspect]
     Indication: ARTHRALGIA
     Route: 048
     Dates: start: 19990701, end: 20021101
  2. VIOXX [Suspect]
     Route: 048
  3. VIOXX [Suspect]
     Route: 048
  4. VIOXX [Suspect]
     Route: 048
  5. ASPIRIN [Concomitant]
     Route: 065
     Dates: start: 20000101
  6. ALEVE [Concomitant]
     Route: 065
  7. ADVIL [Concomitant]
     Route: 065
  8. CELEBREX [Concomitant]
     Route: 065
  9. TRIAMTERENE [Concomitant]
     Route: 065
  10. ZYBAN [Concomitant]
     Route: 065
  11. WARFARIN SODIUM [Concomitant]
     Route: 065
  12. ULTRAM [Concomitant]
     Route: 065
  13. CEPHALEXIN [Concomitant]
     Route: 065
  14. ATENOLOL [Concomitant]
     Route: 065
  15. HYDROCODONE BITARTRATE + ACETAMINOPHEN [Concomitant]
     Route: 065
  16. ACETAMINOPHEN [Concomitant]
     Route: 065
  17. DYAZIDE [Concomitant]
     Route: 065
  18. NORGESIC FORTE [Concomitant]
     Route: 065
  19. DICLOFENAC [Concomitant]
     Route: 065
  20. CATAFLAM [Concomitant]
     Route: 065

REACTIONS (4)
  - ARTHROPATHY [None]
  - CEREBROVASCULAR ACCIDENT [None]
  - HYPERTENSION [None]
  - KNEE ARTHROPLASTY [None]
